FAERS Safety Report 5724861-9 (Version None)
Quarter: 2008Q2

REPORT INFORMATION
  Report Type: 
  Country: None (occurrence: None)
  Receive Date: 20080430
  Receipt Date: 20080430
  Transmission Date: 20081010
  Serious: Yes (Hospitalization)
  Sender: FDA-Public Use
  Company Number: None

PATIENT
  Sex: Male
  Weight: 77.7 kg

DRUGS (3)
  1. TEMOZOLOMIDE [Suspect]
     Dosage: 6355 MG
  2. COUMADIN [Concomitant]
  3. LOVENOX [Concomitant]

REACTIONS (1)
  - DEEP VEIN THROMBOSIS [None]
